FAERS Safety Report 5056990-X (Version None)
Quarter: 2006Q3

REPORT INFORMATION
  Report Type: 
  Country: None (occurrence: None)
  Receive Date: 20060721
  Receipt Date: 20060711
  Transmission Date: 20061208
  Serious: Yes (Other)
  Sender: FDA-Public Use
  Company Number: CA-JNJFOC-20060702261

PATIENT
  Age: 36 Year
  Sex: Female
  Weight: 60.6 kg

DRUGS (4)
  1. REMICADE [Suspect]
     Indication: CROHN'S DISEASE
     Route: 042
  2. BENADRYL [Concomitant]
     Indication: PREMEDICATION
     Route: 042
  3. HYDROCORTISONE TAB [Concomitant]
     Indication: PREMEDICATION
     Route: 042
  4. GRAVOL TAB [Concomitant]
     Indication: PREMEDICATION
     Route: 042

REACTIONS (6)
  - CHEST DISCOMFORT [None]
  - DEPRESSED LEVEL OF CONSCIOUSNESS [None]
  - DRY THROAT [None]
  - INFUSION RELATED REACTION [None]
  - INJECTION SITE PRURITUS [None]
  - VISUAL DISTURBANCE [None]
